FAERS Safety Report 6786645-2 (Version None)
Quarter: 2010Q2

REPORT INFORMATION
  Report Type: 
  Country: None (occurrence: None)
  Receive Date: 20100623
  Receipt Date: 20100621
  Transmission Date: 20101027
  Serious: Yes (Other)
  Sender: FDA-Public Use
  Company Number: US-BRISTOL-MYERS SQUIBB COMPANY-15159130

PATIENT
  Age: 46 Year
  Sex: Female
  Weight: 93 kg

DRUGS (8)
  1. ERBITUX [Suspect]
     Indication: COLORECTAL CANCER
     Dates: start: 20100101
  2. INSULIN [Concomitant]
  3. HUMALOG [Concomitant]
  4. METFORMIN [Concomitant]
  5. HYZAAR [Concomitant]
  6. PROCARDIA [Concomitant]
  7. LIPITOR [Concomitant]
  8. LEXAPRO [Concomitant]

REACTIONS (2)
  - ONYCHOLYSIS [None]
  - RASH PRURITIC [None]
